FAERS Safety Report 9306317 (Version 2)
Quarter: 2013Q3

REPORT INFORMATION
  Report Type: Spontaneous
  Country: US (occurrence: None)
  Receive Date: 20130513
  Receipt Date: 20130829
  Transmission Date: 20140515
  Serious: Yes (Other)
  Sender: FDA-Public Use
  Company Number: 2013PROUSA02789

PATIENT
  Age: 73 Year
  Sex: Male
  Weight: 105.7 kg

DRUGS (5)
  1. PROVENGE [Suspect]
     Indication: PROSTATE CANCER METASTATIC
     Route: 042
     Dates: start: 20130228, end: 20130228
  2. LUPRON [Concomitant]
  3. XGEVA [Concomitant]
  4. LISINOPRIL [Concomitant]
  5. HYDROCHLOROTHIAZIDE [Concomitant]

REACTIONS (5)
  - Tumour flare [None]
  - Pain [None]
  - Arthralgia [None]
  - Musculoskeletal chest pain [None]
  - Tremor [None]
